FAERS Safety Report 5908828-3 (Version None)
Quarter: 2008Q4

REPORT INFORMATION
  Report Type: 
  Country: None (occurrence: None)
  Receive Date: 20081006
  Receipt Date: 20081002
  Transmission Date: 20090506
  Serious: Yes (Other)
  Sender: FDA-Public Use
  Company Number: US-ASTRAZENECA-2008UW12046

PATIENT
  Sex: Female

DRUGS (1)
  1. MERREM [Suspect]
     Indication: ANTIBIOTIC THERAPY
     Route: 042

REACTIONS (1)
  - LACERATION [None]
